FAERS Safety Report 24729415 (Version 4)
Quarter: 2025Q1

REPORT INFORMATION
  Report Type: Spontaneous
  Country: JP (occurrence: JP)
  Receive Date: 20241213
  Receipt Date: 20250130
  Transmission Date: 20250408
  Serious: Yes (Death, Other)
  Sender: GLAXOSMITHKLINE
  Company Number: JP-GSKJP-JP2024156192AA

PATIENT

DRUGS (4)
  1. MOMELOTINIB [Suspect]
     Active Substance: MOMELOTINIB
     Indication: Myelofibrosis
     Route: 048
     Dates: start: 20241018
  2. RUXOLITINIB PHOSPHATE [Concomitant]
     Active Substance: RUXOLITINIB PHOSPHATE
     Indication: Myelofibrosis
     Dosage: 25 MG, BID
     Route: 048
     Dates: start: 2021, end: 20241017
  3. HYDREA [Concomitant]
     Active Substance: HYDROXYUREA
     Indication: Myelofibrosis
     Dosage: 500 MG, BID
     Route: 048
     Dates: start: 2023, end: 2023
  4. CYTARABINE [Concomitant]
     Active Substance: CYTARABINE
     Indication: Acute leukaemia
     Route: 042
     Dates: start: 2023, end: 2023

REACTIONS (1)
  - Myelofibrosis [Fatal]
